FAERS Safety Report 9381217 (Version 16)
Quarter: 2016Q1

REPORT INFORMATION
  Report Type: Report from Study
  Country: CA (occurrence: CA)
  Receive Date: 20130703
  Receipt Date: 20160324
  Transmission Date: 20160526
  Serious: Yes (Other)
  Sender: FDA-Public Use
  Company Number: CA-ROCHE-1241840

PATIENT
  Age: 54 Year
  Sex: Female
  Weight: 88.6 kg

DRUGS (18)
  1. FERROUS GLUCONATE [Concomitant]
     Active Substance: FERROUS GLUCONATE
  2. LOSEC [Concomitant]
     Active Substance: OMEPRAZOLE
  3. ARAVA [Concomitant]
     Active Substance: LEFLUNOMIDE
  4. RITUXAN [Suspect]
     Active Substance: RITUXIMAB
     Indication: RHEUMATOID ARTHRITIS
     Dosage: LAST DOSE ON 10/APR/2014
     Route: 042
     Dates: start: 20101125
  5. COVERSYL [Concomitant]
     Active Substance: PERINDOPRIL
     Route: 065
  6. ACTONEL [Concomitant]
     Active Substance: RISEDRONATE SODIUM
     Route: 065
  7. EFFEXOR [Concomitant]
     Active Substance: VENLAFAXINE HYDROCHLORIDE
     Route: 065
  8. PERCOCET [Concomitant]
     Active Substance: ACETAMINOPHEN\OXYCODONE HYDROCHLORIDE
  9. ENDOCET [Concomitant]
     Active Substance: ACETAMINOPHEN\OXYCODONE HYDROCHLORIDE
  10. DIPHENHYDRAMINE HCL [Concomitant]
     Active Substance: DIPHENHYDRAMINE HYDROCHLORIDE
     Indication: PREMEDICATION
     Route: 048
     Dates: start: 20101125
  11. ACETAMINOPHEN. [Concomitant]
     Active Substance: ACETAMINOPHEN
     Indication: PREMEDICATION
     Route: 048
     Dates: start: 20101125
  12. SPIRIVA [Concomitant]
     Active Substance: TIOTROPIUM BROMIDE MONOHYDRATE
  13. ROBAXISAL-C [Concomitant]
  14. AMITRIPTYLINE [Concomitant]
     Active Substance: AMITRIPTYLINE
  15. METHYLPREDNISOLONE. [Concomitant]
     Active Substance: METHYLPREDNISOLONE
     Indication: PREMEDICATION
     Route: 042
     Dates: start: 20101125
  16. RITUXAN [Suspect]
     Active Substance: RITUXIMAB
     Route: 042
     Dates: start: 20121220
  17. VENTOLIN [Concomitant]
     Active Substance: ALBUTEROL SULFATE
  18. PREDNISONE. [Concomitant]
     Active Substance: PREDNISONE

REACTIONS (34)
  - Arthropathy [Unknown]
  - X-ray limb abnormal [Not Recovered/Not Resolved]
  - Ill-defined disorder [Unknown]
  - Incision site erythema [Not Recovered/Not Resolved]
  - Musculoskeletal stiffness [Not Recovered/Not Resolved]
  - Swelling face [Unknown]
  - Mobility decreased [Not Recovered/Not Resolved]
  - Blood pressure fluctuation [Unknown]
  - Abasia [Unknown]
  - Fatigue [Unknown]
  - Fatigue [Unknown]
  - Musculoskeletal discomfort [Not Recovered/Not Resolved]
  - Ill-defined disorder [Unknown]
  - Paraesthesia [Not Recovered/Not Resolved]
  - Post procedural infection [Not Recovered/Not Resolved]
  - Lung disorder [Not Recovered/Not Resolved]
  - Oedema peripheral [Not Recovered/Not Resolved]
  - Alopecia [Not Recovered/Not Resolved]
  - Peripheral swelling [Not Recovered/Not Resolved]
  - Tendon rupture [Recovered/Resolved]
  - Mass [Not Recovered/Not Resolved]
  - Hypotension [Unknown]
  - Chronic obstructive pulmonary disease [Unknown]
  - Myoclonus [Unknown]
  - Procedural site reaction [Not Recovered/Not Resolved]
  - Joint swelling [Unknown]
  - Rheumatoid arthritis [Not Recovered/Not Resolved]
  - Impaired healing [Recovered/Resolved]
  - Ligament rupture [Recovered/Resolved]
  - Pain in extremity [Not Recovered/Not Resolved]
  - C-reactive protein increased [Unknown]
  - Peripheral swelling [Unknown]
  - Weight decreased [Not Recovered/Not Resolved]
  - Blood pressure increased [Unknown]

NARRATIVE: CASE EVENT DATE: 2013
